FAERS Safety Report 7827143-4 (Version None)
Quarter: 2011Q4

REPORT INFORMATION
  Report Type: 
  Country: None (occurrence: None)
  Receive Date: 20111018
  Receipt Date: 20111003
  Transmission Date: 20120403
  Serious: Yes (Disabling)
  Sender: FDA-Public Use
  Company Number: 1000024575

PATIENT
  Age: 48 Year
  Sex: Female
  Weight: 57 kg

DRUGS (4)
  1. VENTOLIN (SALBUTAMOL) (SALBUTAMOL) [Concomitant]
  2. CITALOPRAM HYDROBROMIDE [Suspect]
     Dosage: ORAL
     Route: 048
     Dates: start: 20110908, end: 20110921
  3. CITALOPRAM HYDROBROMIDE [Suspect]
     Dosage: 20 MG (20 MG, 1 IN  1 D),ORAL
     Route: 048
     Dates: start: 20110922
  4. CO-CODAMOL(CODEINE PHOSPHATE, PARACETAMOL) (CODEINE PHOSPHATE) [Concomitant]

REACTIONS (6)
  - PARAESTHESIA [None]
  - ABASIA [None]
  - TREMOR [None]
  - HYPERSENSITIVITY [None]
  - AMNESIA [None]
  - DRY MOUTH [None]
